FAERS Safety Report 10068902 (Version 1)
Quarter: 2014Q2

REPORT INFORMATION
  Report Type: Report from Study
  Country: DE (occurrence: DE)
  Receive Date: 20140409
  Receipt Date: 20140409
  Transmission Date: 20141212
  Serious: Yes (Hospitalization)
  Sender: FDA-Public Use
  Company Number: DE-ABBVIE-14P-062-1220510-00

PATIENT
  Age: 56 Year
  Sex: Male
  Weight: 48 kg

DRUGS (5)
  1. HUMIRA [Suspect]
     Indication: RHEUMATOID ARTHRITIS
     Route: 058
     Dates: start: 20100108, end: 20130524
  2. HUMIRA [Suspect]
     Dates: start: 20130927
  3. MTX [Concomitant]
     Indication: PRODUCT USED FOR UNKNOWN INDICATION
     Dates: start: 200402
  4. PREDNISOLON [Concomitant]
     Indication: PRODUCT USED FOR UNKNOWN INDICATION
     Dates: start: 201206
  5. INSULIN [Concomitant]
     Indication: PRODUCT USED FOR UNKNOWN INDICATION

REACTIONS (10)
  - Prostatic obstruction [Recovered/Resolved]
  - Calculus ureteric [Recovered/Resolved]
  - Escherichia urinary tract infection [Recovered/Resolved]
  - Pyonephrosis [Recovered/Resolved]
  - Nephrolithiasis [Recovered/Resolved]
  - Erectile dysfunction [Not Recovered/Not Resolved]
  - Dysuria [Recovered/Resolved]
  - Nephrolithiasis [Recovered/Resolved]
  - Arteriosclerosis [Unknown]
  - Urinary tract obstruction [Recovered/Resolved]
